FAERS Safety Report 21019655 (Version 2)
Quarter: 2022Q3

REPORT INFORMATION
  Report Type: Report from Study
  Country: US (occurrence: US)
  Receive Date: 20220628
  Receipt Date: 20220906
  Transmission Date: 20221027
  Serious: Yes (Hospitalization, Other)
  Sender: FDA-Public Use
  Company Number: US-JAZZ-2022-US-000685

PATIENT
  Age: 73 Year
  Sex: Male

DRUGS (9)
  1. XYWAV [Suspect]
     Active Substance: CALCIUM OXYBATE\MAGNESIUM OXYBATE\POTASSIUM OXYBATE\SODIUM OXYBATE
     Indication: Narcolepsy
     Dosage: 3.5 GRAM, BID
     Route: 048
     Dates: start: 202108, end: 202201
  2. XYWAV [Suspect]
     Active Substance: CALCIUM OXYBATE\MAGNESIUM OXYBATE\POTASSIUM OXYBATE\SODIUM OXYBATE
     Indication: Cataplexy
  3. MODAFINIL [Concomitant]
     Active Substance: MODAFINIL
     Indication: Product used for unknown indication
     Dosage: UNK, QD
     Dates: start: 20150917
  4. VITAMIN D3 [Concomitant]
     Active Substance: CHOLECALCIFEROL
     Indication: Product used for unknown indication
     Dosage: 5,000 UNIT SOFTGEL, QD
     Dates: start: 20150917
  5. VITAMIN B12 [Concomitant]
     Active Substance: CYANOCOBALAMIN
     Indication: Product used for unknown indication
     Dosage: UNK, QD
     Dates: start: 20150917
  6. PROTRIPTYLINE HYDROCHLORIDE [Concomitant]
     Active Substance: PROTRIPTYLINE HYDROCHLORIDE
     Indication: Product used for unknown indication
     Dosage: OTH
     Dates: start: 20150917
  7. VIAGRA [Concomitant]
     Active Substance: SILDENAFIL CITRATE
     Indication: Product used for unknown indication
     Dosage: OTH
     Dates: start: 20150917
  8. TAMSULOSIN HYDROCHLORIDE [Concomitant]
     Active Substance: TAMSULOSIN HYDROCHLORIDE
     Indication: Product used for unknown indication
     Dosage: A4
     Dates: start: 20150917
  9. ANDROGEL [Concomitant]
     Active Substance: TESTOSTERONE
     Indication: Product used for unknown indication
     Dosage: UNK, QD
     Dates: start: 20150917

REACTIONS (8)
  - Spinal cord injury [Unknown]
  - Head injury [Unknown]
  - Joint injury [Unknown]
  - Cataplexy [Unknown]
  - Spinal stenosis [Unknown]
  - Condition aggravated [Unknown]
  - Withdrawal syndrome [Unknown]
  - Product administration interrupted [Unknown]

NARRATIVE: CASE EVENT DATE: 20220101
